FAERS Safety Report 6877081-9 (Version None)
Quarter: 2010Q3

REPORT INFORMATION
  Report Type: 
  Country: None (occurrence: None)
  Receive Date: 20100727
  Receipt Date: 20100727
  Transmission Date: 20110219
  Serious: Yes (Hospitalization, Other)
  Sender: FDA-Public Use
  Company Number: None

PATIENT
  Age: 50 Year
  Sex: Female
  Weight: 97.977 kg

DRUGS (2)
  1. YASMIN [Suspect]
     Indication: DYSMENORRHOEA
     Dosage: 1 1 PER DAY
     Dates: start: 20070101, end: 20091001
  2. OCELLA ? BARR/ BAYER [Suspect]
     Indication: MENSTRUATION IRREGULAR
     Dosage: 1  1 PER DAY
     Dates: start: 20091101, end: 20100101

REACTIONS (4)
  - DYSPNOEA [None]
  - PAIN [None]
  - VARICOSE VEIN [None]
  - VISUAL ACUITY REDUCED [None]
